FAERS Safety Report 17118649 (Version 1)
Quarter: 2019Q4

REPORT INFORMATION
  Report Type: Spontaneous
  Country: US (occurrence: US)
  Receive Date: 20191206
  Receipt Date: 20191206
  Transmission Date: 20200122
  Serious: Yes (Other)
  Sender: FDA-Public Use
  Company Number: US-ABBVIE-19K-163-3177529-00

PATIENT
  Sex: Female

DRUGS (1)
  1. ORILISSA [Suspect]
     Active Substance: ELAGOLIX SODIUM
     Indication: ENDOMETRIOSIS
     Route: 048
     Dates: start: 20190601, end: 2019

REACTIONS (4)
  - Intentional product misuse [Unknown]
  - Endometrial scratching [Unknown]
  - In vitro fertilisation [Unknown]
  - Hot flush [Unknown]

NARRATIVE: CASE EVENT DATE: 201908
